FAERS Safety Report 16181340 (Version 3)
Quarter: 2019Q3

REPORT INFORMATION
  Report Type: Report from Study
  Country: None (occurrence: US)
  Receive Date: 20190410
  Receipt Date: 20190815
  Transmission Date: 20191004
  Serious: Yes (Other)
  Sender: FDA-Public Use
  Company Number: US-ABBVIE-19K-163-2657513-00

PATIENT
  Age: 59 Year
  Sex: Male

DRUGS (1)
  1. HUMIRA [Suspect]
     Active Substance: ADALIMUMAB
     Indication: COLITIS ULCERATIVE
     Route: 058

REACTIONS (9)
  - Drug specific antibody present [Unknown]
  - Inflammation [Not Recovered/Not Resolved]
  - Pain in extremity [Recovered/Resolved]
  - Carpal tunnel syndrome [Recovering/Resolving]
  - Neck pain [Recovered/Resolved]
  - Arthralgia [Recovered/Resolved]
  - Musculoskeletal pain [Recovered/Resolved]
  - Drug level decreased [Unknown]
  - Drug ineffective [Unknown]

NARRATIVE: CASE EVENT DATE: 201902
